FAERS Safety Report 7769966-6 (Version None)
Quarter: 2011Q3

REPORT INFORMATION
  Report Type: 
  Country: None (occurrence: None)
  Receive Date: 20110922
  Receipt Date: 20110909
  Transmission Date: 20111222
  Serious: Yes (Other)
  Sender: FDA-Public Use
  Company Number: BR-GLAXOSMITHKLINE-B0746528A

PATIENT
  Sex: Female

DRUGS (6)
  1. ALBUTEROL [Concomitant]
     Indication: ASTHMA
     Dosage: 50MCG PER DAY
  2. ATROVENT [Concomitant]
  3. ENALAPRIL MALEATE [Concomitant]
     Indication: HYPERTENSION
     Dosage: 10MG PER DAY
  4. FUROSEMIDE [Concomitant]
     Dosage: 40MG PER DAY
  5. BEROTEC [Concomitant]
  6. BECLOMETHASONE DIPROPIONATE [Suspect]
     Indication: ASTHMA
     Dosage: 250MCG TWICE PER DAY
     Route: 055
     Dates: start: 20110801, end: 20110801

REACTIONS (7)
  - LIVER DISORDER [None]
  - NAUSEA [None]
  - DRUG INEFFECTIVE [None]
  - MALAISE [None]
  - ABDOMINAL PAIN UPPER [None]
  - DYSPNOEA [None]
  - VOMITING [None]
